FAERS Safety Report 7424118-4 (Version None)
Quarter: 2011Q2

REPORT INFORMATION
  Report Type: 
  Country: None (occurrence: None)
  Receive Date: 20110411
  Receipt Date: 20110404
  Transmission Date: 20111010
  Serious: Yes (Death, Hospitalization)
  Sender: FDA-Public Use
  Company Number: 2011AC000024

PATIENT
  Sex: Male

DRUGS (1)
  1. DIGOXIN [Suspect]
     Dosage: PO
     Route: 048
     Dates: start: 20070101, end: 20080401

REACTIONS (6)
  - PAIN [None]
  - ANHEDONIA [None]
  - INJURY [None]
  - ANXIETY [None]
  - ILL-DEFINED DISORDER [None]
  - ECONOMIC PROBLEM [None]
